FAERS Safety Report 22592212 (Version 1)
Quarter: 2023Q2

REPORT INFORMATION
  Report Type: Report from Study
  Country: CO (occurrence: CO)
  Receive Date: 20230613
  Receipt Date: 20230613
  Transmission Date: 20230721
  Serious: Yes (Hospitalization)
  Sender: FDA-Public Use
  Company Number: CO-ABBVIE-5285297

PATIENT
  Age: 38 Year
  Sex: Female
  Weight: 57 kg

DRUGS (1)
  1. ZEMPLAR [Suspect]
     Active Substance: PARICALCITOL
     Indication: Chronic kidney disease
     Route: 042
     Dates: start: 20170531, end: 20230524

REACTIONS (1)
  - Stress [Recovering/Resolving]

NARRATIVE: CASE EVENT DATE: 20230530
